FAERS Safety Report 8021043-5 (Version None)
Quarter: 2011Q4

REPORT INFORMATION
  Report Type: 
  Country: None (occurrence: None)
  Receive Date: 20111229
  Receipt Date: 20111229
  Transmission Date: 20120403
  Serious: Yes (Other)
  Sender: FDA-Public Use
  Company Number: None

PATIENT
  Age: 77 Year
  Sex: Female
  Weight: 69.8539 kg

DRUGS (11)
  1. AMLODIPINE [Concomitant]
  2. OMEPRAZOLE [Concomitant]
  3. LISINOPRIL [Concomitant]
  4. FLUCONAZOLE [Suspect]
     Dosage: 200MG DAILY ORAL
     Route: 048
     Dates: start: 20110817, end: 20110823
  5. METOPROLOL [Suspect]
  6. SIMVASTATIN [Concomitant]
  7. LINEZOLID [Suspect]
     Dosage: 600MG Q12H ORAL
     Route: 048
     Dates: start: 20110822, end: 20110828
  8. LEVOTHYROXINE SODIUM [Concomitant]
  9. CEPHALEXIN [Concomitant]
  10. MORPHINE [Concomitant]
  11. ONDANSETRON [Concomitant]

REACTIONS (3)
  - DEAFNESS PERMANENT [None]
  - DEAFNESS UNILATERAL [None]
  - SUDDEN HEARING LOSS [None]
